FAERS Safety Report 6472779-9 (Version None)
Quarter: 2009Q4

REPORT INFORMATION
  Report Type: 
  Country: None (occurrence: None)
  Receive Date: 20091203
  Receipt Date: 20081215
  Transmission Date: 20100525
  Serious: No
  Sender: FDA-Public Use
  Company Number: US-AMGEN-KDL324058

PATIENT
  Sex: Female

DRUGS (1)
  1. ENBREL [Suspect]
     Indication: RHEUMATOID ARTHRITIS
     Route: 058
     Dates: start: 20030401

REACTIONS (5)
  - CHILLS [None]
  - DIARRHOEA [None]
  - HYPERSENSITIVITY [None]
  - RESPIRATORY TRACT CONGESTION [None]
  - SINUS DISORDER [None]
